FAERS Safety Report 4952827-5 (Version None)
Quarter: 2006Q1

REPORT INFORMATION
  Report Type: 
  Country: None (occurrence: None)
  Receive Date: 20060324
  Receipt Date: 20060310
  Transmission Date: 20060701
  Serious: Yes (Hospitalization)
  Sender: FDA-Public Use
  Company Number: US-AMGEN-US172018

PATIENT
  Sex: Male

DRUGS (8)
  1. ENBREL [Suspect]
     Indication: RHEUMATOID ARTHRITIS
     Route: 058
     Dates: start: 20030102, end: 20040101
  2. KINERET [Suspect]
     Indication: RHEUMATOID ARTHRITIS
     Route: 058
     Dates: start: 20040809, end: 20050601
  3. PREDNISONE [Suspect]
     Route: 048
     Dates: start: 20020809
  4. METHOTREXATE [Suspect]
     Route: 048
     Dates: start: 20020809
  5. ATIVAN [Concomitant]
     Route: 048
     Dates: start: 20050604
  6. XANAX [Concomitant]
     Route: 048
     Dates: start: 20030327
  7. FOLIC ACID [Concomitant]
     Dates: start: 20020809
  8. POTASSIUM CHLORIDE [Concomitant]
     Dates: start: 20050604

REACTIONS (3)
  - ASCITES [None]
  - PERICARDIAL EFFUSION [None]
  - PLEURAL EFFUSION [None]
